FAERS Safety Report 9179937 (Version 1)
Quarter: 2012Q4

REPORT INFORMATION
  Report Type: 
  Country: DE (occurrence: DE)
  Receive Date: 20121029
  Receipt Date: 20121029
  Transmission Date: 20130627
  Serious: Yes (Other)
  Sender: FDA-Public Use
  Company Number: PHHY2012DE089181

PATIENT
  Age: 36 None
  Sex: Male
  Weight: 105 kg

DRUGS (3)
  1. EXTAVIA [Suspect]
     Indication: MULTIPLE SCLEROSIS
     Dosage: 1 ml, every other day
     Route: 058
     Dates: start: 20091103
  2. RIFUN [Concomitant]
     Indication: GASTROOESOPHAGEAL REFLUX DISEASE
     Dosage: 40 mg per day if needed
     Route: 048
     Dates: start: 2007
  3. METOCLOPRAMIDE [Concomitant]
     Indication: GASTROOESOPHAGEAL REFLUX DISEASE
     Dosage: 3x30 drops/day if needed
     Route: 048
     Dates: start: 2007

REACTIONS (3)
  - Injection site abscess [Recovering/Resolving]
  - Musculoskeletal pain [Recovering/Resolving]
  - Wrong technique in drug usage process [Unknown]
